FAERS Safety Report 8299736-4 (Version None)
Quarter: 2012Q2

REPORT INFORMATION
  Report Type: 
  Country: None (occurrence: None)
  Receive Date: 20120419
  Receipt Date: 20120413
  Transmission Date: 20120825
  Serious: Yes (Other)
  Sender: FDA-Public Use
  Company Number: JP-MERCK-1204USA00876

PATIENT
  Age: 67 Year
  Sex: Male

DRUGS (6)
  1. PEPCID RPD [Suspect]
     Indication: GASTRITIS
     Route: 048
     Dates: start: 20120228, end: 20120229
  2. ZOLPIDEM [Concomitant]
     Route: 048
     Dates: start: 20021226
  3. DIOVAN [Concomitant]
     Indication: HYPERTENSION
     Route: 048
     Dates: start: 20021226
  4. ALLOPURINOL [Concomitant]
     Indication: HYPERURICAEMIA
     Route: 048
     Dates: start: 20030910
  5. GLORIAMIN [Concomitant]
     Indication: GASTRITIS
     Route: 048
     Dates: start: 20120228, end: 20120305
  6. MOTILIUM [Concomitant]
     Indication: GASTRITIS
     Route: 048
     Dates: start: 20120228, end: 20120305

REACTIONS (2)
  - SOMNOLENCE [None]
  - LOSS OF CONSCIOUSNESS [None]
